FAERS Safety Report 21333668 (Version 1)
Quarter: 2022Q3

REPORT INFORMATION
  Report Type: Report from Study
  Country: US (occurrence: US)
  Receive Date: 20220914
  Receipt Date: 20220914
  Transmission Date: 20221027
  Serious: Yes (Other)
  Sender: FDA-Public Use
  Company Number: US-TAKEDA-2022TUS061187

PATIENT
  Sex: Female

DRUGS (1)
  1. VEDOLIZUMAB [Suspect]
     Active Substance: VEDOLIZUMAB
     Indication: Colitis ulcerative
     Dosage: UNK
     Route: 042

REACTIONS (12)
  - Gastrointestinal arteriovenous malformation [Unknown]
  - Hypothyroidism [Unknown]
  - Gastrooesophageal reflux disease [Unknown]
  - Gastric polyps [Unknown]
  - Hiatus hernia [Unknown]
  - Anxiety [Unknown]
  - Colorectal adenoma [Unknown]
  - Diverticulum intestinal [Unknown]
  - Body mass index increased [Unknown]
  - Mitral valve prolapse [Unknown]
  - Biopsy rectum abnormal [Unknown]
  - Constipation [Unknown]
